FAERS Safety Report 21525759 (Version 1)
Quarter: 2022Q4

REPORT INFORMATION
  Report Type: Spontaneous
  Country: US (occurrence: US)
  Receive Date: 20221031
  Receipt Date: 20221031
  Transmission Date: 20230112
  Serious: No
  Sender: FDA-Public Use
  Company Number: US-BAUSCHBL-2022BNL001452

PATIENT
  Sex: Female

DRUGS (2)
  1. TOBRAMYCIN AND DEXAMETHASONE [Suspect]
     Active Substance: DEXAMETHASONE\TOBRAMYCIN
     Indication: Blepharitis
     Route: 065
  2. OFLOXACIN [Suspect]
     Active Substance: OFLOXACIN
     Indication: Blepharitis
     Route: 065

REACTIONS (2)
  - Instillation site pain [Unknown]
  - Therapeutic product effect decreased [Unknown]

NARRATIVE: CASE EVENT DATE: 20220101
